FAERS Safety Report 8062963 (Version 3)
Quarter: 2013Q2

REPORT INFORMATION
  Report Type: Report from Study
  Country: DE (occurrence: DE)
  Receive Date: 20110801
  Receipt Date: 20130522
  Transmission Date: 20140414
  Serious: Yes (Hospitalization)
  Sender: FDA-Public Use
  Company Number: DE-JNJFOC-20110710094

PATIENT
  Age: 13 Year
  Sex: Female
  Weight: 33.4 kg

DRUGS (8)
  1. REMICADE [Suspect]
     Indication: CROHN^S DISEASE
     Route: 042
     Dates: start: 20090317
  2. REMICADE [Suspect]
     Indication: CROHN^S DISEASE
     Route: 042
     Dates: start: 20100420, end: 20100420
  3. HUMIRA [Concomitant]
     Dates: start: 20110712
  4. HUMIRA [Concomitant]
     Dates: start: 20110405
  5. 5-ASA [Concomitant]
     Route: 048
  6. AZATHIOPRINE [Concomitant]
  7. ANTIBIOTICS [Concomitant]
     Indication: CROHN^S DISEASE
  8. CALCIUM [Concomitant]

REACTIONS (1)
  - Condition aggravated [Recovered/Resolved with Sequelae]
